FAERS Safety Report 6921394-9 (Version None)
Quarter: 2010Q3

REPORT INFORMATION
  Report Type: 
  Country: None (occurrence: None)
  Receive Date: 20100812
  Receipt Date: 20100729
  Transmission Date: 20110219
  Serious: Yes (Other)
  Sender: FDA-Public Use
  Company Number: PHEH2006US14743

PATIENT
  Sex: Male
  Weight: 89.342 kg

DRUGS (24)
  1. ZOMETA [Suspect]
     Indication: BONE LESION
     Dosage: 4MG QMO
     Route: 042
     Dates: start: 20051214
  2. AREDIA [Suspect]
  3. DECADRON [Concomitant]
  4. ZOLOFT [Concomitant]
  5. AMBIEN [Concomitant]
  6. COMPAZINE [Concomitant]
  7. THALOMID [Concomitant]
     Indication: MULTIPLE MYELOMA
     Dosage: 200MG QD
  8. HUMULIN R [Concomitant]
     Indication: DIABETES MELLITUS
     Dosage: 3 UNITS WITH EACH MEAL
  9. LANTUS [Concomitant]
  10. LIPITOR [Concomitant]
  11. MIRAPEX [Concomitant]
  12. CARBIDOPA [Concomitant]
  13. NEXIUM [Concomitant]
  14. LORTAB [Concomitant]
  15. ZOFRAN [Concomitant]
  16. ALOXI [Concomitant]
  17. ARANESP [Concomitant]
  18. LASIX [Concomitant]
     Dosage: 20 MG, BID
  19. LEVODOPA [Concomitant]
     Dosage: UNKNOWN DOSAGE DAILY
  20. MICARDIS [Concomitant]
     Dosage: 80 MG DAILY
  21. COUMADIN [Concomitant]
     Dosage: 5 MG DAILY
  22. TOPROL-XL [Concomitant]
     Dosage: 25 MG DAILY
  23. ELAVIL [Concomitant]
     Dosage: 50 MG, QHS
  24. DULCOLAX [Concomitant]
     Dosage: REGULAR BASIS

REACTIONS (52)
  - ANAEMIA [None]
  - ANXIETY [None]
  - ARTHRALGIA [None]
  - BLOOD ALKALINE PHOSPHATASE INCREASED [None]
  - BLOOD CALCIUM DECREASED [None]
  - BLOOD GLUCOSE DECREASED [None]
  - BLOOD GLUCOSE INCREASED [None]
  - BONE DISORDER [None]
  - CEREBRAL ATROPHY [None]
  - CONSTIPATION [None]
  - COUGH [None]
  - DECREASED APPETITE [None]
  - DECREASED INTEREST [None]
  - DENTAL OPERATION [None]
  - DIARRHOEA [None]
  - DIZZINESS [None]
  - DRY SKIN [None]
  - DYSPNOEA [None]
  - EXOSTOSIS [None]
  - FALL [None]
  - FATIGUE [None]
  - FOOT DEFORMITY [None]
  - GAIT DISTURBANCE [None]
  - GENERAL PHYSICAL HEALTH DETERIORATION [None]
  - GINGIVAL PAIN [None]
  - GINGIVAL SWELLING [None]
  - GLOSSODYNIA [None]
  - IMPAIRED HEALING [None]
  - INTERVERTEBRAL DISC DEGENERATION [None]
  - MEAN CELL VOLUME INCREASED [None]
  - NAUSEA [None]
  - NEUTROPENIA [None]
  - OEDEMA PERIPHERAL [None]
  - ORAL DISORDER [None]
  - OSTEOMYELITIS [None]
  - OSTEONECROSIS OF JAW [None]
  - PAIN [None]
  - PAIN IN EXTREMITY [None]
  - PARAESTHESIA [None]
  - PARKINSON'S DISEASE [None]
  - PLATELET COUNT DECREASED [None]
  - POLYURIA [None]
  - RED CELL DISTRIBUTION WIDTH INCREASED [None]
  - SINUS POLYP [None]
  - SKIN EXFOLIATION [None]
  - SPINAL OSTEOARTHRITIS [None]
  - STEM CELL TRANSPLANT [None]
  - STOMATITIS [None]
  - SYNCOPE [None]
  - TONGUE ULCERATION [None]
  - TOOTH EXTRACTION [None]
  - WHITE BLOOD CELL COUNT DECREASED [None]
